FAERS Safety Report 9243620 (Version 2)
Quarter: 2013Q3

REPORT INFORMATION
  Report Type: Report from Study
  Country: US (occurrence: US)
  Receive Date: 20130422
  Receipt Date: 20130911
  Transmission Date: 20140515
  Serious: Yes (Life-Threatening)
  Sender: FDA-Public Use
  Company Number: US-MERCK-1304USA007831

PATIENT
  Age: 59 Year
  Sex: Female
  Weight: 83 kg

DRUGS (2)
  1. TEMOZOLOMIDE [Suspect]
     Indication: OLIGODENDROGLIOMA
     Dosage: ARM B, 150 MG, QD
     Route: 048
     Dates: start: 20130312, end: 20130408
  2. THERAPEUTIC RADIOPHARMACEUTICAL (UNSPECIFIED) [Suspect]
     Dosage: UNK
     Dates: start: 20130312

REACTIONS (3)
  - Platelet count decreased [Not Recovered/Not Resolved]
  - Neutrophil count decreased [Not Recovered/Not Resolved]
  - White blood cell count decreased [Not Recovered/Not Resolved]
